FAERS Safety Report 7357215-2 (Version None)
Quarter: 2011Q1

REPORT INFORMATION
  Report Type: 
  Country: None (occurrence: None)
  Receive Date: 20110317
  Receipt Date: 20110215
  Transmission Date: 20110831
  Serious: Yes (Other)
  Sender: FDA-Public Use
  Company Number: US-PFIZER INC-2010146061

PATIENT
  Sex: Female
  Weight: 134 kg

DRUGS (7)
  1. NOVOLOG [Concomitant]
     Indication: DIABETES MELLITUS
     Dosage: 10-15 IU, 3X/DAY
  2. LANTUS [Concomitant]
     Indication: DIABETES MELLITUS
     Dosage: 35 IU, 2X/DAY
  3. LYRICA [Suspect]
     Indication: DIABETIC NEUROPATHY
     Dosage: 50 MG, 3X/DAY
     Route: 048
     Dates: start: 20101020, end: 20101110
  4. AMBIEN [Concomitant]
     Indication: INSOMNIA
     Dosage: 10 MG, 1X/DAY
     Route: 048
  5. LYRICA [Suspect]
     Dosage: 100 MG, 3X/DAY
  6. PROZAC [Concomitant]
     Indication: DEPRESSION
     Dosage: 20 MG, 1X/DAY
     Route: 048
     Dates: start: 20020101
  7. LAMICTAL [Concomitant]
     Indication: DEPRESSION
     Dosage: 50 MG, 1X/DAY
     Route: 048
     Dates: start: 20020101

REACTIONS (2)
  - NASOPHARYNGITIS [None]
  - WEIGHT INCREASED [None]
